FAERS Safety Report 4820775-7 (Version None)
Quarter: 2005Q4

REPORT INFORMATION
  Report Type: 
  Country: None (occurrence: None)
  Receive Date: 20051104
  Receipt Date: 20051031
  Transmission Date: 20060501
  Serious: Yes (Other)
  Sender: FDA-Public Use
  Company Number: GB-MERCK-0511GBR00009

PATIENT
  Age: 86 Year
  Sex: Female
  Weight: 43 kg

DRUGS (6)
  1. FOSAMAX [Suspect]
     Indication: OSTEOPOROSIS
     Route: 048
     Dates: start: 20050601, end: 20051017
  2. LANSOPRAZOLE [Concomitant]
     Indication: ANAEMIA
     Route: 048
     Dates: start: 20020101
  3. LANSOPRAZOLE [Concomitant]
     Indication: DYSPEPSIA
     Route: 048
     Dates: start: 20020101
  4. CODEINE PHOSPHATE [Concomitant]
     Indication: ARTHRALGIA
     Route: 048
     Dates: start: 20050514
  5. CHOLECALCIFEROL AND CALCIUM CARBONATE [Concomitant]
     Indication: OSTEOPOROSIS
     Route: 048
     Dates: start: 20050919
  6. ACETAMINOPHEN [Concomitant]
     Indication: ARTHRALGIA
     Route: 048
     Dates: start: 20050101

REACTIONS (1)
  - VISION BLURRED [None]
